FAERS Safety Report 5598192-4 (Version None)
Quarter: 2008Q1

REPORT INFORMATION
  Report Type: 
  Country: None (occurrence: None)
  Receive Date: 20080117
  Receipt Date: 20080117
  Transmission Date: 20080703
  Serious: Yes (Other)
  Sender: FDA-Public Use
  Company Number: None

PATIENT
  Sex: Female

DRUGS (1)
  1. VICODIN [Suspect]
     Indication: PAIN
     Dosage: 1-2  EVERY 6 HOURS  PO
     Route: 048
     Dates: start: 20070908, end: 20070909

REACTIONS (1)
  - DRUG HYPERSENSITIVITY [None]
